FAERS Safety Report 12104115 (Version 3)
Quarter: 2017Q1

REPORT INFORMATION
  Report Type: Report from Study
  Country: US (occurrence: US)
  Receive Date: 20160223
  Receipt Date: 20170124
  Transmission Date: 20170428
  Serious: No
  Sender: FDA-Public Use
  Company Number: US-AMGEN-USASL2016017754

PATIENT
  Age: 63 Year
  Sex: Female

DRUGS (2)
  1. ENBREL [Suspect]
     Active Substance: ETANERCEPT
     Indication: RHEUMATOID ARTHRITIS
     Dosage: 25 MG, UNK
     Route: 065
     Dates: start: 20040227, end: 201602
  2. ENBREL [Suspect]
     Active Substance: ETANERCEPT
     Dosage: 25 MG, UNK
     Route: 065
     Dates: end: 201602

REACTIONS (2)
  - Malaise [Unknown]
  - Infection [Not Recovered/Not Resolved]

NARRATIVE: CASE EVENT DATE: 201512
